FAERS Safety Report 7903285-X (Version None)
Quarter: 2011Q4

REPORT INFORMATION
  Report Type: 
  Country: None (occurrence: None)
  Receive Date: 20111108
  Receipt Date: 20111108
  Transmission Date: 20120403
  Serious: Yes (Hospitalization)
  Sender: FDA-Public Use
  Company Number: None

PATIENT
  Sex: Male
  Weight: 131.4 kg

DRUGS (3)
  1. FLUOROURACIL [Suspect]
     Dosage: 5352 MG
     Dates: end: 20111028
  2. IRINOTECAN HCL [Suspect]
     Dosage: 358 MG
     Dates: end: 20111026
  3. LEUCOVORIN CALCIUM [Suspect]
     Dosage: 956 MG
     Dates: end: 20111028

REACTIONS (2)
  - MUSCULOSKELETAL PAIN [None]
  - CONDITION AGGRAVATED [None]
